FAERS Safety Report 5261534-3 (Version None)
Quarter: 2007Q1

REPORT INFORMATION
  Report Type: 
  Country: None (occurrence: None)
  Receive Date: 20061218
  Receipt Date: 20060802
  Transmission Date: 20070707
  Serious: No
  Sender: FDA-Public Use
  Company Number: US200608000781

PATIENT
  Age: 50 Year
  Sex: Male

DRUGS (7)
  1. CIALIS [Suspect]
     Indication: ERECTILE DYSFUNCTION
     Dosage: 20 MG
     Dates: start: 20060701
  2. MONOPRIL [Concomitant]
  3. HYDROCHLOROTHIAZIDE [Concomitant]
  4. ATENOLOL [Concomitant]
  5. TYLENOL /USA/ (PARACETAMOL) [Concomitant]
  6. IBUPROFEN [Concomitant]
  7. CORTISONE ACETATE [Concomitant]

REACTIONS (2)
  - ARTHRALGIA [None]
  - DRUG INEFFECTIVE [None]
